FAERS Safety Report 8901536 (Version 3)
Quarter: 2012Q4

REPORT INFORMATION
  Report Type: 
  Country: US (occurrence: US)
  Receive Date: 20121109
  Receipt Date: 20121127
  Transmission Date: 20130627
  Serious: Yes (Life-Threatening, Hospitalization, Other)
  Sender: FDA-Public Use
  Company Number: US-CELGENEUS-163-21880-12110378

PATIENT
  Age: 75 None
  Sex: Male

DRUGS (1)
  1. REVLIMID [Suspect]
     Indication: MYELODYSPLASTIC SYNDROME
     Dosage: 10 Milligram
     Route: 048
     Dates: start: 20121030, end: 20121102

REACTIONS (4)
  - Lung infection [Not Recovered/Not Resolved]
  - General physical health deterioration [Unknown]
  - Convulsion [Recovered/Resolved]
  - White blood cell count decreased [Unknown]
